FAERS Safety Report 9012737 (Version 1)
Quarter: 2013Q1

REPORT INFORMATION
  Report Type: Spontaneous
  Country: US (occurrence: US)
  Receive Date: 20130114
  Receipt Date: 20130114
  Transmission Date: 20140127
  Serious: No
  Sender: FDA-Public Use
  Company Number: US-009507513-1301USA005205

PATIENT
  Sex: Female

DRUGS (1)
  1. NEXPLANON [Suspect]
     Indication: CONTRACEPTION
     Dosage: 3 YEARS IMPLANT
     Route: 059

REACTIONS (4)
  - Mood altered [Unknown]
  - Device damage [Unknown]
  - Device breakage [Unknown]
  - Product quality issue [Unknown]
